FAERS Safety Report 19908000 (Version 4)
Quarter: 2023Q4

REPORT INFORMATION
  Report Type: Report from Study
  Country: US (occurrence: US)
  Receive Date: 20211001
  Receipt Date: 20231023
  Transmission Date: 20240110
  Serious: Yes (Other)
  Sender: FDA-Public Use
  Company Number: US-TAKEDA-2021TUS059556

PATIENT
  Sex: Female
  Weight: 73 kg

DRUGS (23)
  1. HUMAN IMMUNOGLOBULIN G [Suspect]
     Active Substance: HUMAN IMMUNOGLOBULIN G
     Indication: Immunodeficiency common variable
     Dosage: 40 GRAM, Q4WEEKS
     Route: 042
     Dates: start: 20160109
  2. HUMAN IMMUNOGLOBULIN G [Suspect]
     Active Substance: HUMAN IMMUNOGLOBULIN G
     Dosage: 40 GRAM, Q4WEEKS
     Route: 042
  3. DIPHENHYDRAMINE [Concomitant]
     Active Substance: DIPHENHYDRAMINE
  4. ALBUTEROL SULFATE [Concomitant]
     Active Substance: ALBUTEROL SULFATE
  5. KETOCONAZOLE [Concomitant]
     Active Substance: KETOCONAZOLE
  6. SULFASALAZINE [Concomitant]
     Active Substance: SULFASALAZINE
  7. SODIUM CHLORIDE [Concomitant]
     Active Substance: SODIUM CHLORIDE
  8. EPINEPHRINE [Concomitant]
     Active Substance: EPINEPHRINE
  9. FLUTICASONE PROPIONATE [Concomitant]
     Active Substance: FLUTICASONE PROPIONATE
  10. LEVOTHYROXINE SODIUM [Concomitant]
     Active Substance: LEVOTHYROXINE SODIUM
  11. LISINOPRIL [Concomitant]
     Active Substance: LISINOPRIL
  12. AMLODIPINE BESYLATE [Concomitant]
     Active Substance: AMLODIPINE BESYLATE
  13. CELEBREX [Concomitant]
     Active Substance: CELECOXIB
  14. ACETAMINOPHEN [Concomitant]
     Active Substance: ACETAMINOPHEN
  15. ALLEGRA [Concomitant]
     Active Substance: FEXOFENADINE HYDROCHLORIDE
  16. ATORVASTATIN CALCIUM [Concomitant]
     Active Substance: ATORVASTATIN CALCIUM
  17. FLOVENT HFA [Concomitant]
     Active Substance: FLUTICASONE PROPIONATE
  18. IMODIUM [Concomitant]
     Active Substance: LOPERAMIDE HYDROCHLORIDE
  19. FOLIC ACID [Concomitant]
     Active Substance: FOLIC ACID
  20. PANTOPRAZOLE SODIUM [Concomitant]
     Active Substance: PANTOPRAZOLE SODIUM
  21. FAMOTIDINE [Concomitant]
     Active Substance: FAMOTIDINE
  22. HYDROCORTISONE [Concomitant]
     Active Substance: HYDROCORTISONE
  23. ALLEGRA-D [Concomitant]
     Active Substance: FEXOFENADINE HYDROCHLORIDE\PSEUDOEPHEDRINE HYDROCHLORIDE
     Route: 065

REACTIONS (7)
  - Cataract [Unknown]
  - Cyst [Recovered/Resolved]
  - Influenza [Unknown]
  - Productive cough [Unknown]
  - Post procedural complication [Unknown]
  - Upper respiratory tract infection [Unknown]
  - Fatigue [Unknown]
